FAERS Safety Report 20109382 (Version 1)
Quarter: 2021Q4

REPORT INFORMATION
  Report Type: Spontaneous
  Country: US (occurrence: None)
  Receive Date: 20211124
  Receipt Date: 20211124
  Transmission Date: 20220303
  Serious: Yes (Other)
  Sender: FDA-Public Use
  Company Number: None

PATIENT
  Age: 47 Year
  Sex: Male
  Weight: 83.25 kg

DRUGS (6)
  1. CASIRIVIMAB\IMDEVIMAB [Suspect]
     Active Substance: CASIRIVIMAB\IMDEVIMAB
     Indication: COVID-19
     Dosage: OTHER FREQUENCY : ONCE;?
     Route: 041
     Dates: start: 20211117, end: 20211117
  2. AMANTADINE [Concomitant]
     Active Substance: AMANTADINE
     Dates: start: 20170208
  3. AUSTEDO [Concomitant]
     Active Substance: DEUTETRABENAZINE
     Dates: start: 20201012
  4. FANAPT [Concomitant]
     Active Substance: ILOPERIDONE
     Dates: start: 20141126
  5. OLANZAPINE [Concomitant]
     Active Substance: OLANZAPINE
     Dates: start: 20071025
  6. SIMVASTATIN [Concomitant]
     Active Substance: SIMVASTATIN
     Dates: start: 20150107

REACTIONS (5)
  - Asthenia [None]
  - Fatigue [None]
  - Sluggishness [None]
  - Dehydration [None]
  - Cough [None]

NARRATIVE: CASE EVENT DATE: 20211118
